FAERS Safety Report 5508889-X (Version None)
Quarter: 2007Q4

REPORT INFORMATION
  Report Type: 
  Country: None (occurrence: None)
  Receive Date: 20071026
  Receipt Date: 20070911
  Transmission Date: 20080405
  Serious: Yes (Other)
  Sender: FDA-Public Use
  Company Number: 2007US002190

PATIENT
  Age: 56 Year
  Sex: Female

DRUGS (3)
  1. VAPRISOL [Suspect]
     Indication: HYPONATRAEMIA
     Dosage: 20 MG, IV BOLUS ; 20 MG, IV DRIP
     Route: 040
     Dates: start: 20070616, end: 20070616
  2. VAPRISOL [Suspect]
     Indication: HYPONATRAEMIA
     Dosage: 20 MG, IV BOLUS ; 20 MG, IV DRIP
     Route: 040
     Dates: start: 20070617, end: 20070617
  3. PROTON PUMP INHIBITORS [Concomitant]

REACTIONS (2)
  - BLOOD SODIUM INCREASED [None]
  - HYPOTENSION [None]
